FAERS Safety Report 15010835 (Version 1)
Quarter: 2018Q2

REPORT INFORMATION
  Report Type: Spontaneous
  Country: US (occurrence: US)
  Receive Date: 20180614
  Receipt Date: 20180614
  Transmission Date: 20180711
  Serious: No
  Sender: FDA-Public Use
  Company Number: US-VERTEX PHARMACEUTICALS-2018-003777

PATIENT
  Age: 10 Year
  Sex: Female

DRUGS (11)
  1. BETHKIS [Concomitant]
     Active Substance: TOBRAMYCIN
  2. NASONEX [Concomitant]
     Active Substance: MOMETASONE FUROATE
  3. CREON [Concomitant]
     Active Substance: PANCRELIPASE AMYLASE\PANCRELIPASE LIPASE\PANCRELIPASE PROTEASE
  4. HYPERTONIC SALINE SOLUTION [Concomitant]
     Active Substance: SODIUM CHLORIDE
  5. LORATADINE. [Concomitant]
     Active Substance: LORATADINE
  6. ORKAMBI [Suspect]
     Active Substance: IVACAFTOR\LUMACAFTOR
     Indication: CYSTIC FIBROSIS
     Dosage: 2 DOSAGE FORM (100/125MG EACH), BID WITH FAT CONTAINING FOOD
     Route: 048
     Dates: start: 201803, end: 201803
  7. AZITHROMYCIN ANHYDROUS. [Concomitant]
     Active Substance: AZITHROMYCIN ANHYDROUS
  8. PULMOZYME [Concomitant]
     Active Substance: DORNASE ALFA
  9. PROAIR HFA [Concomitant]
     Active Substance: ALBUTEROL SULFATE
  10. IPRATROPIUM/ALBUTEROL [Concomitant]
     Active Substance: ALBUTEROL\IPRATROPIUM
  11. AQUADEKS                           /07679501/ [Concomitant]
     Active Substance: MINERALS\VITAMINS

REACTIONS (1)
  - Abdominal discomfort [Recovered/Resolved]

NARRATIVE: CASE EVENT DATE: 201803
